FAERS Safety Report 5315123-2 (Version None)
Quarter: 2007Q2

REPORT INFORMATION
  Report Type: 
  Country: None (occurrence: None)
  Receive Date: 20070502
  Receipt Date: 20070420
  Transmission Date: 20071010
  Serious: Yes (Hospitalization, Other)
  Sender: FDA-Public Use
  Company Number: US-PFIZER INC-2007032291

PATIENT
  Sex: Female
  Weight: 90.909 kg

DRUGS (5)
  1. LIPITOR [Suspect]
     Indication: BLOOD CHOLESTEROL INCREASED
     Route: 048
     Dates: start: 20060101
  2. LITHIUM CARBONATE [Concomitant]
  3. LISINOPRIL [Concomitant]
  4. OXYBUTYNIN CHLORIDE [Concomitant]
  5. GLIPIZIDE [Concomitant]

REACTIONS (4)
  - CYSTITIS [None]
  - MUSCLE SPASMS [None]
  - PAIN IN EXTREMITY [None]
  - PNEUMONIA [None]
